FAERS Safety Report 4492691-4 (Version None)
Quarter: 2004Q4

REPORT INFORMATION
  Report Type: 
  Country: None (occurrence: None)
  Receive Date: 20041029
  Receipt Date: 20041019
  Transmission Date: 20050328
  Serious: Yes (Hospitalization)
  Sender: FDA-Public Use
  Company Number: 2004081142

PATIENT
  Age: 37 Year
  Sex: Female

DRUGS (5)
  1. NEURONTIN [Suspect]
     Indication: EPILEPSY
     Dosage: 1800 MG(600 MG, 3 IN 1 D)
     Dates: start: 20040101
  2. PRAVASTATIN SODIUM [Concomitant]
  3. PHENOBARBITAL SODIUM 100MG CAP [Concomitant]
  4. RISPERDAL [Concomitant]
  5. NOCTRAN 10 (ACEPROMAZINE, ACEPROMATAZINE, CLORAZEPATE DIPOTASSIUM) [Concomitant]

REACTIONS (5)
  - DRUG INEFFECTIVE [None]
  - EPILEPSY [None]
  - HYPONATRAEMIA [None]
  - LEUKOPENIA [None]
  - NEUTROPENIA [None]
